FAERS Safety Report 16208025 (Version 11)
Quarter: 2025Q3

REPORT INFORMATION
  Report Type: Report from Study
  Country: JP (occurrence: JP)
  Receive Date: 20190417
  Receipt Date: 20250807
  Transmission Date: 20251020
  Serious: Yes (Death, Life-Threatening)
  Sender: GILEAD
  Company Number: JP-GILEAD-2019-0400776

PATIENT
  Age: 81 Year
  Sex: Female
  Weight: 57.6 kg

DRUGS (27)
  1. SOFOSBUVIR\VELPATASVIR [Suspect]
     Active Substance: SOFOSBUVIR\VELPATASVIR
     Indication: Hepatitis C
     Dosage: QD, ADMINISTRATED IN THE MORNING
     Route: 048
     Dates: start: 20190401, end: 20190402
  2. SOFOSBUVIR\VELPATASVIR [Suspect]
     Active Substance: SOFOSBUVIR\VELPATASVIR
     Indication: Hepatic cirrhosis
  3. SPIRONOLACTONE [Concomitant]
     Active Substance: SPIRONOLACTONE
     Indication: Hepatic cirrhosis
     Dosage: 2 DOSAGE FORM, QD (AFTER BREAKFAST)
     Route: 048
     Dates: start: 20060914
  4. RABEPRAZOLE SODIUM [Concomitant]
     Active Substance: RABEPRAZOLE SODIUM
     Indication: Prophylaxis
     Dosage: 1 DOSAGE FORM, QD (AFTER BREAKFAST)
     Route: 048
  5. FUROSEMIDE [Concomitant]
     Active Substance: FUROSEMIDE
     Indication: Hepatic cirrhosis
     Dosage: 2 DOSAGE FORM, QD (AFTER BREAKFAST)
     Route: 048
     Dates: start: 20130124
  6. LEVOTHYROXINE SODIUM [Concomitant]
     Active Substance: LEVOTHYROXINE SODIUM
     Indication: Disease complication
     Dosage: 1 DOSAGE FORM, QD (2HOURS AFTER BREAKFAST)
     Route: 048
     Dates: start: 20130222, end: 20190807
  7. METHYLCOBALAMIN [Concomitant]
     Active Substance: METHYLCOBALAMIN
     Indication: Neuropathy peripheral
     Dosage: 1 DOSAGE FORM, TID (AFTER MEALS)
     Route: 048
     Dates: start: 20130220, end: 20190717
  8. LIVACT [ISOLEUCINE;LEUCINE;VALINE] [Concomitant]
     Indication: Hepatic cirrhosis
     Dosage: 3 DOSAGE FORM, TID (AFTER MEALS)
     Route: 048
     Dates: end: 20190703
  9. URSODIOL [Concomitant]
     Active Substance: URSODIOL
     Indication: Hepatitis C
     Dosage: 3 DOSAGE FORM, TID (AFTER MEALS)
     Route: 048
  10. POLAPREZINC [Concomitant]
     Active Substance: POLAPREZINC
     Indication: Hepatic cirrhosis
     Dosage: 1 DOSAGE FORM, BID (AFTER BREAKFAST, BEFORE BEDTIME)
     Route: 048
     Dates: start: 20060112, end: 20190703
  11. KAYWAN [Concomitant]
     Indication: Hepatic cirrhosis
     Dosage: 2 DOSAGE FORM, BID (AFTER BREAKFAST AND SUPPER)
     Route: 048
     Dates: start: 20170105, end: 20190703
  12. CANDESARTAN [Concomitant]
     Active Substance: CANDESARTAN
     Indication: Hypertension
     Dosage: 4 MG, QD (AFTER BREAKFAST)
     Route: 048
  13. BISOPROLOL FUMARATE [Concomitant]
     Active Substance: BISOPROLOL FUMARATE
     Indication: Hypertension
     Dosage: 1 DOSAGE FORM, QD (AFTER SUPPER)
     Route: 048
     Dates: start: 20190206, end: 20190403
  14. CALONAL [Concomitant]
     Active Substance: ACETAMINOPHEN
     Indication: Pyrexia
     Dosage: 2 DOSAGE FORM, TID (AFTER MEALS)
     Route: 048
     Dates: start: 20190205, end: 20190817
  15. CALONAL [Concomitant]
     Active Substance: ACETAMINOPHEN
     Route: 048
  16. ESFLURBIPROFEN\HERBALS [Concomitant]
     Active Substance: ESFLURBIPROFEN\HERBALS
     Route: 062
     Dates: start: 20190220, end: 20190318
  17. ORYCTOLAGUS CUNICULUS SKIN [Concomitant]
     Active Substance: ORYCTOLAGUS CUNICULUS SKIN
     Indication: Back pain
     Dosage: 2 DOSAGE FORM, BID (AFTER BREAKFAST AND SUPPER)
     Route: 048
     Dates: start: 20190220, end: 20190717
  18. STRONGER NEO MINOPHAGEN C [CYSTEINE HYDROCHLORIDE;GLYCINE;GLYCYRRHIZIC [Concomitant]
     Indication: Hepatitis C
     Route: 042
  19. AMPICILLIN SODIUM\SULBACTAM SODIUM [Concomitant]
     Active Substance: AMPICILLIN SODIUM\SULBACTAM SODIUM
     Indication: Streptococcal infection
     Route: 041
     Dates: start: 20190402, end: 20190404
  20. AMPICILLIN SODIUM\SULBACTAM SODIUM [Concomitant]
     Active Substance: AMPICILLIN SODIUM\SULBACTAM SODIUM
     Indication: Pyrexia
  21. ALBUMIN HUMAN [Concomitant]
     Active Substance: ALBUMIN HUMAN
     Indication: Hepatic cirrhosis
     Dosage: 1 DOSAGE FORM, QD
     Dates: start: 20190402, end: 20190407
  22. ALBUMIN HUMAN [Concomitant]
     Active Substance: ALBUMIN HUMAN
     Route: 041
     Dates: start: 20061214, end: 20190910
  23. LANSOPRAZOLE [Concomitant]
     Active Substance: LANSOPRAZOLE
     Indication: Hepatic cirrhosis
     Dates: start: 20121221, end: 20190703
  24. ACHILLEA MILLEFOLIUM\RUBIA TINCTURE\SENNA FRUIT EXTRACT\SENNA LEAF\TAR [Concomitant]
     Active Substance: ACHILLEA MILLEFOLIUM\RUBIA TINCTURE\SENNA FRUIT EXTRACT\SENNA LEAF\TARAXACUM OFFICINALE
     Route: 048
  25. FERROUS SULFATE [Concomitant]
     Active Substance: FERROUS SULFATE
     Route: 048
     Dates: start: 20190206, end: 20190313
  26. U-PASTA [Concomitant]
     Indication: Disease complication
     Route: 061
     Dates: start: 20190327, end: 20190403
  27. BETAMETHASONE DIPROPIONATE [Concomitant]
     Active Substance: BETAMETHASONE DIPROPIONATE
     Indication: Disease complication
     Route: 061
     Dates: start: 20190327, end: 20190403

REACTIONS (10)
  - Sinus arrest [Recovered/Resolved]
  - Hepatic failure [Fatal]
  - Bacteraemia [Recovered/Resolved]
  - Cellulitis [Recovered/Resolved]
  - Sepsis [Recovered/Resolved]
  - Gastric haemorrhage [Recovered/Resolved]
  - Cryptococcosis [Not Recovered/Not Resolved]
  - Renal impairment [Not Recovered/Not Resolved]
  - Cardiac failure [Not Recovered/Not Resolved]
  - Interstitial lung disease [Not Recovered/Not Resolved]

NARRATIVE: CASE EVENT DATE: 20190401
